FAERS Safety Report 5826602-3 (Version None)
Quarter: 2008Q3

REPORT INFORMATION
  Report Type: 
  Country: None (occurrence: None)
  Receive Date: 20080728
  Receipt Date: 20080728
  Transmission Date: 20090109
  Serious: Yes (Hospitalization)
  Sender: FDA-Public Use
  Company Number: None

PATIENT
  Sex: Male
  Weight: 70.3 kg

DRUGS (2)
  1. TAXOTERE [Suspect]
     Dosage: 139 MG
  2. PREDNISONE TAB [Suspect]
     Dosage: 156 MG

REACTIONS (1)
  - FEBRILE NEUTROPENIA [None]
